FAERS Safety Report 8340262-1 (Version None)
Quarter: 2012Q2

REPORT INFORMATION
  Report Type: 
  Country: None (occurrence: None)
  Receive Date: 20120507
  Receipt Date: 20120502
  Transmission Date: 20120825
  Serious: Yes (Other)
  Sender: FDA-Public Use
  Company Number: PHHY2012BR038371

PATIENT
  Age: 56 Year
  Sex: Male

DRUGS (2)
  1. DIOVAN HCT [Suspect]
     Dosage: 1 DF (320/12.5 MG), UNK
  2. DIOVAN HCT [Suspect]
     Dosage: 1 DF (160/12.5 MG), DAILY

REACTIONS (5)
  - MALAISE [None]
  - CONDITION AGGRAVATED [None]
  - PALPITATIONS [None]
  - NEPHROLITHIASIS [None]
  - FATIGUE [None]
